FAERS Safety Report 17555062 (Version 2)
Quarter: 2020Q1

REPORT INFORMATION
  Report Type: Report from Study
  Country: ES (occurrence: ES)
  Receive Date: 20200318
  Receipt Date: 20200331
  Transmission Date: 20200409
  Serious: Yes (Hospitalization)
  Sender: FDA-Public Use
  Company Number: ES-ROCHE-2565103

PATIENT
  Age: 38 Year
  Sex: Female
  Weight: 48.8 kg

DRUGS (12)
  1. METHYLPREDNISOLONE. [Suspect]
     Active Substance: METHYLPREDNISOLONE
     Indication: PREMEDICATION
     Dosage: NEXT DOSE: 05/DEC/2017, 08/MAY/2018, 23/OCT/2018, 08/APR/2019 AND 30/SEP/2019
     Route: 042
     Dates: start: 20171121
  2. OCRELIZUMAB. [Suspect]
     Active Substance: OCRELIZUMAB
     Indication: RELAPSING-REMITTING MULTIPLE SCLEROSIS
     Dosage: SUBSEQUENT DOSE: 05/DEC/2017, 08/MAY/2018, 23/OCT/2018, 08/APR/2019 AND 30/SEP/2019
     Route: 042
     Dates: start: 20171121
  3. BETMIGA [Concomitant]
     Active Substance: MIRABEGRON
     Route: 048
     Dates: start: 20190627
  4. LIORESAL [Concomitant]
     Active Substance: BACLOFEN
     Route: 065
     Dates: start: 20181221
  5. POLARAMINE [Concomitant]
     Active Substance: DEXCHLORPHENIRAMINE MALEATE
     Indication: PREMEDICATION
     Dosage: NEXT DOSE ON 05/DEC/2017, 08/MAY/2018, 23/OCT/2018, 08/APR/2019 AND 30/SEP/2019
     Route: 048
     Dates: start: 20171121
  6. LUMIGAN [Concomitant]
     Active Substance: BIMATOPROST
     Route: 047
     Dates: start: 20160626
  7. EMCONCOR [Concomitant]
     Active Substance: BISOPROLOL FUMARATE
     Route: 048
  8. SERTRALINA [SERTRALINE] [Concomitant]
     Active Substance: SERTRALINE HYDROCHLORIDE
     Route: 048
  9. DIAZEPAM. [Concomitant]
     Active Substance: DIAZEPAM
     Dosage: 12/OCT/2018: 10 MG ORAL ONGOING
     Route: 048
     Dates: start: 20180830, end: 20181012
  10. PARACETAMOL [Concomitant]
     Active Substance: ACETAMINOPHEN
     Indication: PREMEDICATION
     Dosage: NEXT DOSE ON 05/DEC/2017, 08/MAY/2018, 23/OCT/2018, 08/APR/2019 AND 30/SEP/2019
     Route: 042
     Dates: start: 20171121
  11. MOVICOL [Concomitant]
     Active Substance: POLYETHYLENE GLYCOL 3350\POTASSIUM CHLORIDE\SODIUM BICARBONATE\SODIUM CHLORIDE
     Route: 048
  12. NAPROXEN. [Concomitant]
     Active Substance: NAPROXEN
     Indication: DYSMENORRHOEA
     Route: 048

REACTIONS (1)
  - Varicella [Recovered/Resolved]

NARRATIVE: CASE EVENT DATE: 20200301
